FAERS Safety Report 5655158-3 (Version None)
Quarter: 2008Q1

REPORT INFORMATION
  Report Type: 
  Country: None (occurrence: None)
  Receive Date: 20080307
  Receipt Date: 20080226
  Transmission Date: 20080703
  Serious: Yes (Hospitalization, Other)
  Sender: FDA-Public Use
  Company Number: HQWYE803724APR07

PATIENT
  Age: 63 Year
  Sex: Male

DRUGS (5)
  1. CORDARONE [Suspect]
     Indication: ATRIAL FIBRILLATION
     Dosage: 2 X 300 + 900 ML
     Route: 042
     Dates: start: 20041007, end: 20041011
  2. BECLOMETHASONE DIPROPIONATE [Concomitant]
     Route: 055
  3. CLOPIDOGREL [Concomitant]
     Route: 048
  4. ASPIRIN [Concomitant]
     Route: 065
  5. DILTIAZEM HCL [Concomitant]
     Route: 048

REACTIONS (2)
  - CORNEAL DEPOSITS [None]
  - VISION BLURRED [None]
